FAERS Safety Report 6010795-1 (Version None)
Quarter: 2008Q4

REPORT INFORMATION
  Report Type: 
  Country: None (occurrence: None)
  Receive Date: 20081218
  Receipt Date: 20081208
  Transmission Date: 20090506
  Serious: Yes (Other)
  Sender: FDA-Public Use
  Company Number: PHHY2008BR31492

PATIENT
  Age: 52 Year
  Sex: Female
  Weight: 57 kg

DRUGS (4)
  1. ESTRADERM [Suspect]
     Indication: HORMONE THERAPY
     Dosage: 50 MCG, ADHESIVE REPLACEMENT 2 TIMES/WEEK
     Route: 062
     Dates: start: 20080901
  2. ESTRADERM [Suspect]
     Dosage: 50 MCG
     Route: 062
     Dates: start: 20081205
  3. CELEBRA [Concomitant]
     Indication: INFECTION
     Dosage: 200 MG, 2 TABS PER DAY
     Dates: start: 20081101
  4. AMOXICILLIN [Concomitant]
     Indication: INFECTION
     Dosage: 500 MG, Q8H
     Route: 048

REACTIONS (5)
  - APPLICATION SITE ERYTHEMA [None]
  - APPLICATION SITE PRURITUS [None]
  - ENDODONTIC PROCEDURE [None]
  - SKIN DISCOLOURATION [None]
  - TOOTH INFECTION [None]
